FAERS Safety Report 9973678 (Version 1)
Quarter: 2014Q1

REPORT INFORMATION
  Report Type: Spontaneous
  Country: FR (occurrence: FR)
  Receive Date: 20140306
  Receipt Date: 20140306
  Transmission Date: 20141002
  Serious: Yes (Other)
  Sender: FDA-Public Use
  Company Number: FR-PFIZER INC-2014062281

PATIENT
  Age: 63 Year
  Sex: Male

DRUGS (10)
  1. SIMVASTATIN [Suspect]
     Dosage: 20 MG, DAILY
     Route: 048
     Dates: start: 2001
  2. CORDARONE [Suspect]
     Indication: ATRIAL FIBRILLATION
     Dosage: 200 MG, (PER DAY, 5 DAYS PER WEEK)
     Route: 048
     Dates: start: 2007
  3. CORDARONE [Suspect]
     Dosage: 200 MG, DAILY
     Route: 048
     Dates: start: 201308
  4. XARELTO [Suspect]
     Dosage: 20 MG, DAILY
     Route: 048
     Dates: start: 20130808, end: 20130814
  5. NISISCO [Suspect]
     Dosage: 1 DF, DAILY
     Route: 048
     Dates: start: 2001
  6. MEDIATENSYL [Suspect]
     Dosage: 120 MG, DAILY
     Route: 048
     Dates: start: 2001
  7. HEMIGOXINE NATIVELLE [Suspect]
     Dosage: 0.125 MG, DAILY
     Route: 048
     Dates: start: 2007
  8. STAGID [Suspect]
     Dosage: 2100 MG, DAILY
     Route: 048
     Dates: start: 2007
  9. JANUVIA [Suspect]
     Dosage: 1 DF, DAILY
     Route: 048
     Dates: start: 2007
  10. KARDEGIC [Concomitant]
     Dosage: 75 MG, UNK

REACTIONS (3)
  - Muscle rupture [Recovering/Resolving]
  - Fall [Unknown]
  - Atrial fibrillation [Unknown]
